FAERS Safety Report 16660704 (Version 1)
Quarter: 2019Q3

REPORT INFORMATION
  Report Type: Spontaneous
  Country: US (occurrence: US)
  Receive Date: 20190802
  Receipt Date: 20190802
  Transmission Date: 20191004
  Serious: Yes (Other)
  Sender: FDA-Public Use
  Company Number: US-TEVA-2019-US-1087068

PATIENT
  Age: 48 Year
  Sex: Female

DRUGS (1)
  1. AJOVY [Suspect]
     Active Substance: FREMANEZUMAB-VFRM
     Indication: MIGRAINE
     Dosage: STARTED EITHER 12/2018 OR 01/2019
     Dates: end: 201901

REACTIONS (5)
  - Heart rate increased [Recovered/Resolved]
  - Mouth swelling [Recovered/Resolved]
  - Palpitations [Recovered/Resolved]
  - Throat tightness [Recovered/Resolved]
  - Swelling face [Recovered/Resolved]
